FAERS Safety Report 10284065 (Version 2)
Quarter: 2014Q3

REPORT INFORMATION
  Report Type: Spontaneous
  Country: US (occurrence: US)
  Receive Date: 20140708
  Receipt Date: 20140722
  Transmission Date: 20150326
  Serious: No
  Sender: FDA-Public Use
  Company Number: US-PFIZER INC-2014182222

PATIENT
  Age: 53 Year
  Sex: Female

DRUGS (1)
  1. XELJANZ [Suspect]
     Active Substance: TOFACITINIB CITRATE
     Indication: PSORIATIC ARTHROPATHY
     Dosage: 5 MG, 1 TABLET BY MOUTH, 2X/DAY
     Route: 048
     Dates: start: 20140422

REACTIONS (2)
  - Fall [Recovered/Resolved]
  - Wound [Recovering/Resolving]

NARRATIVE: CASE EVENT DATE: 201406
